FAERS Safety Report 9280071 (Version 1)
Quarter: 2013Q2

REPORT INFORMATION
  Report Type: Spontaneous
  Country: US (occurrence: None)
  Receive Date: 20130507
  Receipt Date: 20130507
  Transmission Date: 20140414
  Serious: No
  Sender: FDA-Public Use
  Company Number: None

PATIENT
  Age: 65 Year
  Sex: Male
  Weight: 123 kg

DRUGS (1)
  1. ULTRAVIST [Suspect]
     Route: 042

REACTIONS (3)
  - Pruritus [None]
  - Hypoaesthesia [None]
  - Gait disturbance [None]
